FAERS Safety Report 10098453 (Version 3)
Quarter: 2014Q2

REPORT INFORMATION
  Report Type: Spontaneous
  Country: US (occurrence: US)
  Receive Date: 20140423
  Receipt Date: 20140617
  Transmission Date: 20141212
  Serious: Yes (Other)
  Sender: FDA-Public Use
  Company Number: US-ROCHE-1388617

PATIENT
  Age: 51 Year
  Sex: Male
  Weight: 108 kg

DRUGS (9)
  1. XOLAIR [Suspect]
     Indication: ASTHMA
     Route: 058
     Dates: start: 20140304, end: 20140402
  2. BROVANA [Concomitant]
     Indication: ASTHMA
     Route: 065
     Dates: start: 20130911
  3. BUDESONIDE [Concomitant]
     Indication: ASTHMA
     Route: 065
     Dates: start: 20131218
  4. PROAIR (UNITED STATES) [Concomitant]
     Indication: ASTHMA
     Route: 048
  5. ADVIL [Concomitant]
     Dosage: 2 TAB PRN
     Route: 048
  6. ALBUTEROL [Concomitant]
     Dosage: PRN
     Route: 050
  7. IPRATROPIUM [Concomitant]
     Dosage: PRN
     Route: 050
  8. NASONEX [Concomitant]
     Route: 045
  9. ZYRTEC [Concomitant]
     Route: 048

REACTIONS (3)
  - Dizziness [Recovered/Resolved]
  - Dyspnoea [Recovered/Resolved]
  - Urticaria [Recovered/Resolved]
